FAERS Safety Report 9491907 (Version 1)
Quarter: 2013Q3

REPORT INFORMATION
  Report Type: Spontaneous
  Country: BR (occurrence: BR)
  Receive Date: 20130830
  Receipt Date: 20130830
  Transmission Date: 20140515
  Serious: Yes (Death)
  Sender: FDA-Public Use
  Company Number: BR-JNJFOC-20130815846

PATIENT
  Age: 33 Year
  Sex: 0

DRUGS (2)
  1. REMICADE [Suspect]
     Indication: CROHN^S DISEASE
     Route: 042
     Dates: start: 20120620
  2. REMICADE [Suspect]
     Indication: CROHN^S DISEASE
     Route: 042

REACTIONS (1)
  - Coma [Fatal]
